FAERS Safety Report 4370095-2 (Version None)
Quarter: 2004Q2

REPORT INFORMATION
  Report Type: 
  Country: None (occurrence: None)
  Receive Date: 20040527
  Receipt Date: 20040518
  Transmission Date: 20050107
  Serious: Yes (Other)
  Sender: FDA-Public Use
  Company Number: AU_040507697

PATIENT
  Age: 75 Year
  Sex: Female

DRUGS (1)
  1. ZYPREXA [Suspect]
     Dates: start: 20000101

REACTIONS (2)
  - BLINDNESS [None]
  - OPTIC NEUROPATHY [None]
